FAERS Safety Report 11984619 (Version 2)
Quarter: 2016Q1

REPORT INFORMATION
  Report Type: Report from Study
  Country: US (occurrence: US)
  Receive Date: 20160201
  Receipt Date: 20160223
  Transmission Date: 20160526
  Serious: Yes (Hospitalization, Other)
  Sender: FDA-Public Use
  Company Number: US-TEVA-616306USA

PATIENT
  Age: 59 Year
  Sex: Male

DRUGS (5)
  1. CLOZAPINE. [Suspect]
     Active Substance: CLOZAPINE
     Indication: SCHIZOAFFECTIVE DISORDER
     Dosage: 50 MILLIGRAM DAILY; HS
     Route: 048
  2. INSULIN [Concomitant]
     Active Substance: INSULIN NOS
  3. CLINDAMYCIN [Concomitant]
     Active Substance: CLINDAMYCIN\CLINDAMYCIN PHOSPHATE
  4. PREGABALIN. [Concomitant]
     Active Substance: PREGABALIN
  5. SEVELAMER [Concomitant]
     Active Substance: SEVELAMER

REACTIONS (3)
  - Renal cancer [Recovering/Resolving]
  - Haematoma [Recovered/Resolved]
  - Haematoma infection [Unknown]

NARRATIVE: CASE EVENT DATE: 201510
